FAERS Safety Report 24045675 (Version 2)
Quarter: 2024Q3

REPORT INFORMATION
  Report Type: Spontaneous
  Country: US (occurrence: US)
  Receive Date: 20240703
  Receipt Date: 20240903
  Transmission Date: 20241017
  Serious: No
  Sender: GILEAD
  Company Number: US-GILEAD-2024-0679404

PATIENT
  Age: 29 Year
  Sex: Female

DRUGS (2)
  1. TRUVADA [Suspect]
     Active Substance: EMTRICITABINE\TENOFOVIR DISOPROXIL FUMARATE
     Indication: Hepatitis C
     Dosage: UNK
     Route: 048
     Dates: start: 20180101, end: 20211204
  2. TRUVADA [Suspect]
     Active Substance: EMTRICITABINE\TENOFOVIR DISOPROXIL FUMARATE
     Dosage: UNK
     Route: 048
     Dates: start: 20180308, end: 20180619

REACTIONS (1)
  - Vitamin D deficiency [Recovered/Resolved]

NARRATIVE: CASE EVENT DATE: 20210104
